FAERS Safety Report 8790733 (Version 1)
Quarter: 2012Q4

REPORT INFORMATION
  Report Type: Spontaneous
  Country: US (occurrence: None)
  Receive Date: 20120913
  Receipt Date: 20120913
  Transmission Date: 20130627
  Serious: Yes (Other)
  Sender: FDA-Public Use
  Company Number: None

PATIENT
  Age: 64 Year
  Sex: Female
  Weight: 78 kg

DRUGS (2)
  1. HYDROMORPHONE [Suspect]
     Indication: POSTOPERATIVE PAIN
     Dosage: HYDROMORPHONE 2 MG TABLETS EVERY 3 HOURS ORALLY/BY MOUTH
     Route: 048
     Dates: start: 20120807
  2. HYDROMORPHONE [Suspect]
     Indication: HIP REPLACEMENT
     Dosage: HYDROMORPHONE 2 MG TABLETS EVERY 3 HOURS ORALLY/BY MOUTH
     Route: 048
     Dates: start: 20120807

REACTIONS (2)
  - Tremor [None]
  - Chills [None]
